FAERS Safety Report 7363600-5 (Version None)
Quarter: 2011Q1

REPORT INFORMATION
  Report Type: 
  Country: None (occurrence: None)
  Receive Date: 20110321
  Receipt Date: 20110316
  Transmission Date: 20110831
  Serious: Yes (Death, Life-Threatening, Hospitalization)
  Sender: FDA-Public Use
  Company Number: FI-PFIZER INC-2010085030

PATIENT
  Age: 62 Year
  Sex: Male

DRUGS (3)
  1. SUTENT [Suspect]
     Indication: RENAL CANCER
     Dosage: 50 MG 1X/DAY, 4 WKS, PAUSE 2 WKS
     Route: 048
     Dates: start: 20100518, end: 20100628
  2. KLEXANE [Suspect]
     Indication: TUMOUR THROMBOSIS
     Dosage: 40 MG, 1X/DAY
     Route: 058
     Dates: start: 20100518, end: 20100101
  3. KLEXANE [Suspect]
     Indication: PROPHYLAXIS

REACTIONS (3)
  - HEMIPLEGIA [None]
  - DEATH [None]
  - CEREBRAL HAEMORRHAGE [None]
